FAERS Safety Report 20632517 (Version 1)
Quarter: 2022Q1

REPORT INFORMATION
  Report Type: Spontaneous
  Country: US (occurrence: None)
  Receive Date: 20220324
  Receipt Date: 20220324
  Transmission Date: 20220423
  Serious: Yes (Hospitalization)
  Sender: FDA-Public Use
  Company Number: None

PATIENT

DRUGS (2)
  1. EPINEPHRINE HYDROCHLORIDE [Suspect]
     Active Substance: EPINEPHRINE HYDROCHLORIDE
  2. ADRENALIN(R) [Suspect]
     Active Substance: EPINEPHRINE

REACTIONS (7)
  - Product selection error [None]
  - Product preparation issue [None]
  - Drug monitoring procedure not performed [None]
  - Product dispensing error [None]
  - Product appearance confusion [None]
  - Product packaging confusion [None]
  - Incorrect route of product administration [None]
